FAERS Safety Report 18684027 (Version 1)
Quarter: 2020Q4

REPORT INFORMATION
  Report Type: Spontaneous
  Country: US (occurrence: US)
  Receive Date: 20201230
  Receipt Date: 20201230
  Transmission Date: 20210114
  Serious: Yes (Other)
  Sender: FDA-Public Use
  Company Number: US-ASTRAZENECA-2020SF73407

PATIENT

DRUGS (2)
  1. LYNPARZA [Suspect]
     Active Substance: OLAPARIB
     Indication: GASTROINTESTINAL CARCINOMA
     Route: 048
     Dates: start: 20201123
  2. LYNPARZA [Suspect]
     Active Substance: OLAPARIB
     Indication: GASTROINTESTINAL CARCINOMA
     Dosage: FOR ABOUT A MONTH
     Route: 048
     Dates: start: 20201020

REACTIONS (3)
  - Incorrect dose administered [Recovered/Resolved]
  - Recurrent cancer [Unknown]
  - Carbohydrate antigen 19-9 increased [Not Recovered/Not Resolved]
